FAERS Safety Report 7936848-6 (Version None)
Quarter: 2011Q4

REPORT INFORMATION
  Report Type: 
  Country: None (occurrence: None)
  Receive Date: 20111123
  Receipt Date: 20111123
  Transmission Date: 20120403
  Serious: Yes (Hospitalization)
  Sender: FDA-Public Use
  Company Number: None

PATIENT
  Age: 54 Year
  Sex: Female

DRUGS (2)
  1. PEGASYS [Concomitant]
     Indication: HEPATITIS C
     Dosage: 135MCG
     Route: 058
     Dates: start: 20110901, end: 20111118
  2. RIBAVIRIN [Suspect]
     Indication: HEPATITIS C
     Dosage: 400MG
     Route: 048
     Dates: start: 20110901, end: 20111118

REACTIONS (6)
  - FATIGUE [None]
  - NAUSEA [None]
  - DECREASED APPETITE [None]
  - ANAEMIA [None]
  - WHITE BLOOD CELL COUNT DECREASED [None]
  - DEHYDRATION [None]
